FAERS Safety Report 16667709 (Version 1)
Quarter: 2019Q3

REPORT INFORMATION
  Report Type: Spontaneous
  Country: CA (occurrence: CA)
  Receive Date: 20190805
  Receipt Date: 20190805
  Transmission Date: 20191004
  Serious: Yes (Hospitalization)
  Sender: FDA-Public Use
  Company Number: CA-PFIZER INC-2019331827

PATIENT
  Age: 52 Year
  Sex: Female

DRUGS (18)
  1. DEHYDROEPIANDROSTERONE [Suspect]
     Active Substance: PRASTERONE
     Dosage: UNK
     Route: 067
  2. DEHYDROEPIANDROSTERONE [Suspect]
     Active Substance: PRASTERONE
     Dosage: UNK
     Route: 067
  3. PROGESTERONE. [Suspect]
     Active Substance: PROGESTERONE
     Indication: MENOPAUSE
     Dosage: UNK
  4. PRASTERONE [Suspect]
     Active Substance: PRASTERONE
     Dosage: UNK
     Route: 067
  5. GLICLAZIDE [Concomitant]
     Active Substance: GLICLAZIDE
     Dosage: UNK
  6. ESTRADIOL. [Suspect]
     Active Substance: ESTRADIOL
     Dosage: UNK
  7. PROGESTERONE. [Suspect]
     Active Substance: PROGESTERONE
     Dosage: UNK
     Route: 065
  8. BUDESONIDE. [Suspect]
     Active Substance: BUDESONIDE
     Dosage: UNK
     Route: 065
  9. BUDESONIDE. [Suspect]
     Active Substance: BUDESONIDE
     Dosage: 1 DF, 1X/DAY
     Route: 065
  10. LORATADINE. [Suspect]
     Active Substance: LORATADINE
     Dosage: 10 MG, UNK
     Route: 048
  11. BUDESONIDE. [Concomitant]
     Active Substance: BUDESONIDE
     Dosage: UNK
  12. CLARITIN [Concomitant]
     Active Substance: LORATADINE
     Dosage: UNK
     Route: 065
  13. ESTRADIOL. [Suspect]
     Active Substance: ESTRADIOL
     Dosage: UNK
  14. BUDESONIDE. [Suspect]
     Active Substance: BUDESONIDE
     Dosage: UNK
  15. CRINONE [Suspect]
     Active Substance: PROGESTERONE
     Indication: MENOPAUSE
     Dosage: UNK
  16. LORATADINE. [Suspect]
     Active Substance: LORATADINE
     Dosage: UNK
     Route: 048
  17. LORATADINE. [Suspect]
     Active Substance: LORATADINE
     Dosage: 10 MG, UNK
     Route: 048
  18. CLARITIN [Concomitant]
     Active Substance: LORATADINE
     Dosage: UNK

REACTIONS (10)
  - Periorbital oedema [Unknown]
  - Rash [Unknown]
  - Butterfly rash [Unknown]
  - Tinnitus [Unknown]
  - Feeling hot [Unknown]
  - Photosensitivity reaction [Unknown]
  - Cellulitis [Unknown]
  - Head discomfort [Unknown]
  - Swelling face [Unknown]
  - Product use in unapproved indication [Unknown]
